FAERS Safety Report 5473853-6 (Version None)
Quarter: 2007Q4

REPORT INFORMATION
  Report Type: 
  Country: None (occurrence: None)
  Receive Date: 20071001
  Receipt Date: 20070919
  Transmission Date: 20080405
  Serious: Yes (Other)
  Sender: FDA-Public Use
  Company Number: US-PFIZER INC-2007078901

PATIENT
  Sex: Female
  Weight: 55.454 kg

DRUGS (3)
  1. CHANTIX [Suspect]
     Indication: SMOKING CESSATION THERAPY
  2. DIAZEPAM [Concomitant]
  3. VICODIN [Concomitant]

REACTIONS (8)
  - ABDOMINAL PAIN UPPER [None]
  - ABNORMAL DREAMS [None]
  - ANXIETY [None]
  - DIZZINESS [None]
  - INFLUENZA LIKE ILLNESS [None]
  - THROAT TIGHTNESS [None]
  - VOMITING [None]
  - WEIGHT DECREASED [None]
